FAERS Safety Report 16156171 (Version 1)
Quarter: 2019Q2

REPORT INFORMATION
  Report Type: Spontaneous
  Country: FR (occurrence: FR)
  Receive Date: 20190404
  Receipt Date: 20190404
  Transmission Date: 20190711
  Serious: Yes (Hospitalization)
  Sender: FDA-Public Use
  Company Number: FR-SUN PHARMACEUTICAL INDUSTRIES LTD-2019RR-204096

PATIENT
  Age: 85 Year
  Sex: Female
  Weight: 98 kg

DRUGS (15)
  1. NAFTILUX [Concomitant]
     Active Substance: NAFRONYL OXALATE
     Indication: PRODUCT USED FOR UNKNOWN INDICATION
     Dosage: 400 MILLIGRAM, DAILY
     Route: 048
     Dates: end: 20070201
  2. NOVONORM [Concomitant]
     Active Substance: REPAGLINIDE
     Indication: PRODUCT USED FOR UNKNOWN INDICATION
     Dosage: 1 MILLIGRAM, DAILY
     Route: 048
  3. EUPRESSYL 30 MG [Suspect]
     Active Substance: URAPIDIL
     Indication: ESSENTIAL HYPERTENSION
     Dosage: 90 MILLIGRAM, DAILY
     Route: 048
  4. HUMALOG [Concomitant]
     Active Substance: INSULIN LISPRO
     Indication: PRODUCT USED FOR UNKNOWN INDICATION
     Dosage: DAILY DOSE 16 IU
     Route: 058
  5. MIRTAZAPINE. [Concomitant]
     Active Substance: MIRTAZAPINE
     Indication: PRODUCT USED FOR UNKNOWN INDICATION
     Dosage: ()
     Route: 048
     Dates: end: 20070201
  6. FORTZAAR [Suspect]
     Active Substance: HYDROCHLOROTHIAZIDE\LOSARTAN POTASSIUM
     Indication: ESSENTIAL HYPERTENSION
     Dosage: 1 DOSAGE FORM, DAILY
     Route: 048
  7. LOXEN [Concomitant]
     Indication: PRODUCT USED FOR UNKNOWN INDICATION
     Dosage: 50 MILLIGRAM, DAILY
     Route: 048
     Dates: end: 20070201
  8. MOXONIDINE [Concomitant]
     Active Substance: MOXONIDINE
     Indication: PRODUCT USED FOR UNKNOWN INDICATION
     Dosage: 0.2 MILLIGRAM, DAILY
     Route: 048
     Dates: end: 20070201
  9. NEURONTIN [Suspect]
     Active Substance: GABAPENTIN
     Indication: PRODUCT USED FOR UNKNOWN INDICATION
     Dosage: 600 MILLIGRAM
     Route: 048
  10. CODOLIPRANE [Suspect]
     Active Substance: ACETAMINOPHEN\CODEINE PHOSPHATE
     Indication: PRODUCT USED FOR UNKNOWN INDICATION
     Dosage: ()
     Route: 048
     Dates: start: 20070126, end: 20070201
  11. TEMESTA (LORAZEPAM) [Suspect]
     Active Substance: LORAZEPAM
     Indication: PRODUCT USED FOR UNKNOWN INDICATION
     Dosage: 1 MILLIGRAM, DAILY
     Route: 048
     Dates: end: 20070201
  12. UMULINE [Concomitant]
     Active Substance: INSULIN HUMAN
     Indication: PRODUCT USED FOR UNKNOWN INDICATION
     Dosage: 36 INTERNATIONAL UNIT, DAILY
     Route: 058
  13. OMEPRAZOLE. [Suspect]
     Active Substance: OMEPRAZOLE
     Indication: PRODUCT USED FOR UNKNOWN INDICATION
     Dosage: 20 MILLIGRAM, DAILY
     Route: 048
  14. ASPEGIC (ACETYLSALICYLATE LYSINE) [Concomitant]
     Active Substance: ASPIRIN DL-LYSINE
     Indication: PRODUCT USED FOR UNKNOWN INDICATION
     Dosage: 250 MILLIGRAM, DAILY
     Route: 048
  15. DAFALGAN 500 [Concomitant]
     Indication: PRODUCT USED FOR UNKNOWN INDICATION
     Dosage: 500 MILLIGRAM, DAILY
     Route: 048

REACTIONS (2)
  - Confusional state [Recovering/Resolving]
  - Fall [Recovering/Resolving]

NARRATIVE: CASE EVENT DATE: 20070201
